FAERS Safety Report 5541657-1 (Version None)
Quarter: 2007Q4

REPORT INFORMATION
  Report Type: 
  Country: None (occurrence: None)
  Receive Date: 20071210
  Receipt Date: 20071129
  Transmission Date: 20080405
  Serious: Yes (Other)
  Sender: FDA-Public Use
  Company Number: PHMT2007CA02346

PATIENT
  Sex: Male

DRUGS (1)
  1. VOLTAREN [Suspect]
     Dates: end: 20071129

REACTIONS (1)
  - CORNEAL EROSION [None]
